FAERS Safety Report 15721412 (Version 8)
Quarter: 2020Q1

REPORT INFORMATION
  Report Type: Spontaneous
  Country: US (occurrence: US)
  Receive Date: 20181214
  Receipt Date: 20200220
  Transmission Date: 20200409
  Serious: Yes (Hospitalization)
  Sender: FDA-Public Use
  Company Number: US-TAKEDA-2018MPI016892

PATIENT
  Age: 80 Year
  Sex: Male

DRUGS (3)
  1. NINLARO [Suspect]
     Active Substance: IXAZOMIB CITRATE
     Indication: PLASMA CELL MYELOMA
     Dosage: 3 MILLIGRAM
     Route: 048
     Dates: start: 20180922
  2. REVLIMID [Concomitant]
     Active Substance: LENALIDOMIDE
     Indication: PRODUCT USED FOR UNKNOWN INDICATION
     Dosage: UNK
     Route: 048
  3. NINLARO [Suspect]
     Active Substance: IXAZOMIB CITRATE
     Dosage: 3 MILLIGRAM
     Route: 048
     Dates: start: 20180922

REACTIONS (9)
  - Dialysis [Unknown]
  - Fatigue [Unknown]
  - Asthenia [Unknown]
  - Infection [Unknown]
  - Gout [Unknown]
  - Fluid intake restriction [Unknown]
  - Blood glucose decreased [Unknown]
  - Pneumonia [Unknown]
  - Blood culture positive [Unknown]

NARRATIVE: CASE EVENT DATE: 20191230
